FAERS Safety Report 6288829-9 (Version None)
Quarter: 2009Q3

REPORT INFORMATION
  Report Type: 
  Country: None (occurrence: None)
  Receive Date: 20090727
  Receipt Date: 20090710
  Transmission Date: 20100115
  Serious: Yes (Hospitalization)
  Sender: FDA-Public Use
  Company Number: 2009BI021830

PATIENT
  Age: 57 Year
  Sex: Female

DRUGS (4)
  1. ZEVALIN [Suspect]
     Indication: FOLLICLE CENTRE LYMPHOMA, FOLLICULAR GRADE I, II, III STAGE IV
     Dosage: 703 MBQ; 1X; IV
     Route: 042
     Dates: start: 20090120, end: 20090127
  2. RITUXIMAB [Concomitant]
  3. LOXONIN [Concomitant]
  4. POLARAMINE [Concomitant]

REACTIONS (1)
  - BONE MARROW FAILURE [None]
